FAERS Safety Report 24901270 (Version 3)
Quarter: 2025Q1

REPORT INFORMATION
  Report Type: Report from Study
  Country: JP (occurrence: JP)
  Receive Date: 20250129
  Receipt Date: 20250206
  Transmission Date: 20250409
  Serious: Yes (Hospitalization)
  Sender: PFIZER
  Company Number: JP-PFIZER INC-202500018718

PATIENT
  Sex: Female

DRUGS (2)
  1. MEROPENEM [Interacting]
     Active Substance: MEROPENEM
     Indication: Toxicity to various agents
     Route: 041
  2. VALPROIC ACID [Interacting]
     Active Substance: VALPROIC ACID

REACTIONS (2)
  - Drug interaction [Unknown]
  - Toxicity to various agents [Unknown]
